FAERS Safety Report 7577866-X (Version None)
Quarter: 2011Q2

REPORT INFORMATION
  Report Type: 
  Country: None (occurrence: None)
  Receive Date: 20110628
  Receipt Date: 20110617
  Transmission Date: 20111010
  Serious: Yes (Other)
  Sender: FDA-Public Use
  Company Number: PHHY2011DE51311

PATIENT
  Sex: Female

DRUGS (2)
  1. ASPIRIN [Concomitant]
     Dosage: 100 MG, UNK
  2. ESTRATEST [Suspect]
     Indication: HORMONE REPLACEMENT THERAPY
     Dosage: UNK UKN, QW2
     Route: 062
     Dates: start: 19890101

REACTIONS (6)
  - BLOOD PRESSURE INCREASED [None]
  - TRANSIENT ISCHAEMIC ATTACK [None]
  - POLYCYTHAEMIA VERA [None]
  - VISUAL IMPAIRMENT [None]
  - HAEMATOCRIT INCREASED [None]
  - HOT FLUSH [None]
